FAERS Safety Report 5066609-X (Version None)
Quarter: 2006Q3

REPORT INFORMATION
  Report Type: 
  Country: None (occurrence: None)
  Receive Date: 20060712
  Receipt Date: 20060419
  Transmission Date: 20061208
  Serious: No
  Sender: FDA-Public Use
  Company Number: A03200602454

PATIENT
  Age: 50 Year
  Sex: Male

DRUGS (4)
  1. UROXATRAL [Suspect]
     Indication: BENIGN PROSTATIC HYPERPLASIA
     Dosage: 10 MG QD - ORAL
     Route: 048
     Dates: start: 20051101, end: 20060301
  2. EFAVIRENZ [Concomitant]
  3. EMTRICITABINE + TENOFOVIR DISOPROXIL FUMARATE [Concomitant]
  4. DAPSONE [Concomitant]

REACTIONS (2)
  - AMNESIA [None]
  - CONFUSIONAL STATE [None]
